FAERS Safety Report 5239156-X (Version None)
Quarter: 2007Q2

REPORT INFORMATION
  Report Type: 
  Country: None (occurrence: None)
  Receive Date: 20070212
  Receipt Date: 20070131
  Transmission Date: 20071010
  Serious: Yes (Other)
  Sender: FDA-Public Use
  Company Number: CHNY2007DE00649

PATIENT
  Sex: Female

DRUGS (1)
  1. LAMISIL [Suspect]
     Dosage: TOPICAL
     Route: 061
     Dates: start: 20070101

REACTIONS (2)
  - HYPERSENSITIVITY [None]
  - WOUND SECRETION [None]
